FAERS Safety Report 8495411-1 (Version None)
Quarter: 2012Q3

REPORT INFORMATION
  Report Type: 
  Country: None (occurrence: None)
  Receive Date: 20120709
  Receipt Date: 20120703
  Transmission Date: 20120928
  Serious: Yes (Hospitalization)
  Sender: FDA-Public Use
  Company Number: US-BAYER-2011-111991

PATIENT
  Age: 18 Year
  Sex: Female
  Weight: 55.782 kg

DRUGS (11)
  1. ABILIFY [Concomitant]
     Dosage: UNK
  2. WELLBUTRIN SR [Concomitant]
     Dosage: 100 MG, UNK
  3. NSAID'S [Concomitant]
     Indication: MUSCLE SPASMS
  4. GARDASIL [Concomitant]
  5. LAMICTAL [Concomitant]
     Indication: BIPOLAR DISORDER
     Dosage: 300 MG, UNK
  6. YAZ [Suspect]
     Indication: CONTRACEPTION
     Dosage: 5 UNK, UNK
     Dates: start: 20080919, end: 20081220
  7. DROSPIRENONE AND ETHINYL ESTRADIOL [Suspect]
     Indication: CONTRACEPTION
     Dosage: UNK
     Dates: start: 20090118, end: 20091213
  8. LAMOTRIGINE [Concomitant]
     Indication: BIPOLAR DISORDER
     Dosage: UNK
     Dates: start: 20090801, end: 20110130
  9. PAXIL [Concomitant]
     Dosage: 10 MG, UNK
  10. ALEVE [Concomitant]
     Dosage: UNK
     Dates: start: 20091201
  11. ADDERALL 5 [Concomitant]
     Indication: DISTURBANCE IN ATTENTION
     Dosage: 20 MG, QD

REACTIONS (7)
  - PULMONARY EMBOLISM [None]
  - GENERAL PHYSICAL HEALTH DETERIORATION [None]
  - EMOTIONAL DISTRESS [None]
  - ANXIETY [None]
  - FEAR [None]
  - MUSCULOSKELETAL PAIN [None]
  - CHEST PAIN [None]
